FAERS Safety Report 6107130-7 (Version None)
Quarter: 2009Q1

REPORT INFORMATION
  Report Type: 
  Country: None (occurrence: None)
  Receive Date: 20090309
  Receipt Date: 20090224
  Transmission Date: 20090719
  Serious: Yes (Hospitalization)
  Sender: FDA-Public Use
  Company Number: PHHY2008MX10903

PATIENT
  Age: 76 Year
  Sex: Female
  Weight: 60 kg

DRUGS (3)
  1. DIOVAN [Suspect]
     Indication: HYPERTENSION
     Dosage: 160 MG, QD
     Dates: start: 20030101, end: 20080301
  2. DIOVAN [Suspect]
     Dosage: 1 TABLET (160 MG) PER DAY
     Dates: start: 20080601
  3. CAPTOPRIL [Concomitant]
     Route: 048

REACTIONS (3)
  - HEARING IMPAIRED [None]
  - POOR PERIPHERAL CIRCULATION [None]
  - VERTIGO [None]
